FAERS Safety Report 13977498 (Version 1)
Quarter: 2017Q3

REPORT INFORMATION
  Report Type: Report from Study
  Country: AR (occurrence: AR)
  Receive Date: 20170915
  Receipt Date: 20170915
  Transmission Date: 20171128
  Serious: Yes (Death)
  Sender: FDA-Public Use
  Company Number: PHHY2017AR135867

PATIENT
  Sex: Female

DRUGS (1)
  1. ENTRESTO [Suspect]
     Active Substance: SACUBITRIL\VALSARTAN
     Indication: CARDIAC FAILURE CHRONIC
     Dosage: 1 DF (50 MG (24 MG OF SACUBITRIL AND 26 MG OF VALSARTAN)), BID
     Route: 065
     Dates: start: 20160809

REACTIONS (1)
  - Chronic obstructive pulmonary disease [Fatal]
